FAERS Safety Report 19506650 (Version 8)
Quarter: 2022Q3

REPORT INFORMATION
  Report Type: Other
  Country: CN (occurrence: None)
  Receive Date: 20210708
  Receipt Date: 20220817
  Transmission Date: 20221026
  Serious: Yes (Other)
  Sender: FDA-Public Use
  Company Number: CN-ROCHE-1781751

PATIENT
  Age: 57 Year
  Sex: Female
  Weight: 62 kg

DRUGS (3)
  1. AVASTIN [Suspect]
     Active Substance: BEVACIZUMAB
     Indication: Colorectal cancer
     Route: 041
     Dates: start: 20160415, end: 20200416
  2. AVASTIN [Suspect]
     Active Substance: BEVACIZUMAB
     Indication: Rectal cancer
     Route: 041
     Dates: end: 20220120
  3. AVASTIN [Suspect]
     Active Substance: BEVACIZUMAB
     Dosage: 100MG, INJECTION
     Route: 041

REACTIONS (28)
  - Renal hydrocele [Unknown]
  - Renal hydrocele [Unknown]
  - Metastases to pelvis [Unknown]
  - Anal fistula [Unknown]
  - Proctalgia [Unknown]
  - Discomfort [Unknown]
  - Toothache [Unknown]
  - Blood urine [Unknown]
  - Cough [Unknown]
  - Headache [Unknown]
  - Nasopharyngitis [Recovered/Resolved]
  - Nasopharyngitis [Recovered/Resolved]
  - Nasopharyngitis [Recovered/Resolved]
  - Discomfort [Unknown]
  - Resorption bone increased [Unknown]
  - Ureterolithiasis [Unknown]
  - Ureteric dilatation [Unknown]
  - Pain in extremity [Unknown]
  - Marasmus [Unknown]
  - Neoplasm malignant [Unknown]
  - Hypertension [Unknown]
  - Cardiac discomfort [Unknown]
  - Hypoaesthesia [Unknown]
  - Ocular discomfort [Unknown]
  - Movement disorder [Unknown]
  - Poor quality sleep [Unknown]
  - Ureterolithiasis [Unknown]
  - Discomfort [Unknown]

NARRATIVE: CASE EVENT DATE: 20190708
